FAERS Safety Report 7866588-3 (Version None)
Quarter: 2011Q4

REPORT INFORMATION
  Report Type: 
  Country: None (occurrence: None)
  Receive Date: 20111028
  Receipt Date: 20110711
  Transmission Date: 20120403
  Serious: No
  Sender: FDA-Public Use
  Company Number: US-GLAXOSMITHKLINE-A0936312A

PATIENT
  Age: 55 Year
  Sex: Female

DRUGS (4)
  1. ESTROGEN PATCH [Concomitant]
  2. PROAIR HFA [Concomitant]
  3. FLUTICASONE PROPIONATE [Concomitant]
  4. ADVAIR DISKUS 100/50 [Suspect]
     Indication: CHRONIC OBSTRUCTIVE PULMONARY DISEASE
     Dosage: 1PUFF TWICE PER DAY
     Route: 055
     Dates: start: 20040101

REACTIONS (1)
  - BREATH ALCOHOL TEST POSITIVE [None]
